FAERS Safety Report 25363426 (Version 1)
Quarter: 2025Q2

REPORT INFORMATION
  Report Type: Spontaneous
  Country: PH (occurrence: PH)
  Receive Date: 20250527
  Receipt Date: 20250527
  Transmission Date: 20250717
  Serious: Yes (Life-Threatening)
  Sender: BAYER HEALTHCARE PHARMACEUTICALS INC.
  Company Number: PH-BAYER-2025A069014

PATIENT
  Sex: Female

DRUGS (1)
  1. ULTRAVIST [Suspect]
     Active Substance: IOPROMIDE
     Indication: Computerised tomogram abdomen
     Route: 042
     Dates: start: 20250219, end: 20250219

REACTIONS (5)
  - Flushing [Unknown]
  - Swelling face [None]
  - Dysgeusia [Unknown]
  - Loss of consciousness [Unknown]
  - Heart rate increased [Unknown]

NARRATIVE: CASE EVENT DATE: 20250219
